FAERS Safety Report 8760809 (Version 1)
Quarter: 2012Q4

REPORT INFORMATION
  Report Type: 
  Country: AR (occurrence: AR)
  Receive Date: 20120830
  Receipt Date: 20120830
  Transmission Date: 20130627
  Serious: Yes (Other)
  Sender: FDA-Public Use
  Company Number: AR-UCBSA-063978

PATIENT
  Age: 17 Year
  Sex: Female

DRUGS (3)
  1. KEPPRA [Suspect]
     Indication: EPILEPSY
     Dosage: DAILY  DOSE: 1500 MG
     Route: 048
     Dates: start: 201104
  2. LAMICTAL [Suspect]
     Indication: EPILEPSY
     Dosage: DAILY DOSE: 200 MG
     Route: 048
  3. CLOBAZAM [Suspect]
     Indication: EPILEPSY
     Dosage: DAILY DOSE: 350 MG
     Route: 048

REACTIONS (5)
  - Uterine enlargement [Unknown]
  - Premature delivery [Unknown]
  - Partial seizures [Unknown]
  - Pregnancy [Recovered/Resolved]
  - Breast feeding [Recovered/Resolved]
